FAERS Safety Report 17043901 (Version 2)
Quarter: 2019Q4

REPORT INFORMATION
  Report Type: Spontaneous
  Country: PT (occurrence: PT)
  Receive Date: 20191118
  Receipt Date: 20191120
  Transmission Date: 20200122
  Serious: No
  Sender: FDA-Public Use
  Company Number: PT-PFIZER INC-2019493033

PATIENT
  Age: 42 Year
  Sex: Female

DRUGS (11)
  1. LORAZEPAM. [Suspect]
     Active Substance: LORAZEPAM
     Dosage: UNK
  2. INSULIN LISPRO [Suspect]
     Active Substance: INSULIN LISPRO
     Dosage: UNK
  3. ACETYLSALICYLIC ACID [Suspect]
     Active Substance: ASPIRIN
     Dosage: UNK
  4. INSULIN DETEMIR [Suspect]
     Active Substance: INSULIN DETEMIR
     Dosage: UNK
  5. PENTOXIFYLLINE. [Suspect]
     Active Substance: PENTOXIFYLLINE
     Dosage: UNK
  6. CHOLECALCIFEROL [Suspect]
     Active Substance: CHOLECALCIFEROL
     Dosage: UNK
  7. ROSUVASTATIN. [Suspect]
     Active Substance: ROSUVASTATIN
     Dosage: UNK
  8. ESCITALOPRAM [Suspect]
     Active Substance: ESCITALOPRAM OXALATE
     Dosage: UNK
  9. OMEPRAZOL [Suspect]
     Active Substance: OMEPRAZOLE
     Dosage: UNK
  10. PERINDOPRIL [Suspect]
     Active Substance: PERINDOPRIL
     Dosage: UNK
  11. BISOPROLOL [Suspect]
     Active Substance: BISOPROLOL
     Dosage: UNK

REACTIONS (1)
  - Treatment noncompliance [Unknown]
